FAERS Safety Report 12920533 (Version 2)
Quarter: 2017Q1

REPORT INFORMATION
  Report Type: Report from Study
  Country: BR (occurrence: BR)
  Receive Date: 20161108
  Receipt Date: 20170206
  Transmission Date: 20170428
  Serious: Yes (Death, Hospitalization)
  Sender: FDA-Public Use
  Company Number: PHHY2016BR152962

PATIENT
  Age: 81 Year
  Sex: Male
  Weight: 40 kg

DRUGS (1)
  1. EXELON PATCH [Suspect]
     Active Substance: RIVASTIGMINE
     Indication: SENILE DEMENTIA
     Dosage: 9.5 MG, QD (PATCH 10 (CM2))
     Route: 062

REACTIONS (5)
  - Death [Fatal]
  - Product use issue [Unknown]
  - Drug administered at inappropriate site [Unknown]
  - Pyrexia [Unknown]
  - Pneumonia [Unknown]

NARRATIVE: CASE EVENT DATE: 20161102
